FAERS Safety Report 8326689-2 (Version None)
Quarter: 2012Q2

REPORT INFORMATION
  Report Type: 
  Country: None (occurrence: None)
  Receive Date: 20120501
  Receipt Date: 20110808
  Transmission Date: 20120825
  Serious: No
  Sender: FDA-Public Use
  Company Number: US-SANOFI-AVENTIS-2011SA051082

PATIENT
  Sex: Female

DRUGS (2)
  1. SOLOSTAR [Suspect]
     Dates: start: 20110808, end: 20110808
  2. APIDRA [Suspect]
     Route: 058
     Dates: start: 20110808, end: 20110808

REACTIONS (1)
  - INJURY ASSOCIATED WITH DEVICE [None]
